FAERS Safety Report 5315389-9 (Version None)
Quarter: 2007Q2

REPORT INFORMATION
  Report Type: 
  Country: None (occurrence: None)
  Receive Date: 20070503
  Receipt Date: 20070425
  Transmission Date: 20071010
  Serious: Yes (Other)
  Sender: FDA-Public Use
  Company Number: PHEH2007US04429

PATIENT
  Age: 40 Year
  Sex: Female
  Weight: 88.435 kg

DRUGS (8)
  1. ZELNORM [Suspect]
     Indication: CONSTIPATION
     Dosage: 6 MG, BID
     Dates: start: 20070201
  2. ZELNORM [Suspect]
     Dosage: 6 MG, QD
     Dates: end: 20070406
  3. CELEBREX [Concomitant]
     Indication: RHEUMATOID ARTHRITIS
     Dosage: 200 MG, QD
     Dates: start: 20070201
  4. ADIPEX [Concomitant]
     Indication: WEIGHT DECREASED
     Dosage: 10 MG, QD
     Dates: start: 20070201
  5. VIOXX [Concomitant]
     Indication: RHEUMATOID ARTHRITIS
     Dosage: UNK, UNK
     Dates: start: 20060101
  6. REGLAN [Concomitant]
     Dosage: 10 MG, QID
     Dates: start: 20070401, end: 20070401
  7. TRAZODONE HCL [Concomitant]
     Dosage: UNK, PRN
     Dates: start: 20070401
  8. SENNA [Concomitant]
     Indication: CONSTIPATION
     Dosage: 1 TAB, UP TO 10 TABS/DAY
     Dates: start: 20070401

REACTIONS (10)
  - BIOPSY BREAST [None]
  - BREAST MASS [None]
  - DIZZINESS [None]
  - FEELING HOT [None]
  - HEADACHE [None]
  - HYPERHIDROSIS [None]
  - MAMMOGRAM ABNORMAL [None]
  - MUSCULOSKELETAL STIFFNESS [None]
  - PHARYNGEAL OEDEMA [None]
  - SWOLLEN TONGUE [None]
